FAERS Safety Report 9429188 (Version 1)
Quarter: 2013Q3

REPORT INFORMATION
  Report Type: Spontaneous
  Country: US (occurrence: US)
  Receive Date: 20130730
  Receipt Date: 20130730
  Transmission Date: 20140515
  Serious: No
  Sender: FDA-Public Use
  Company Number: US-BAYER-2013-091781

PATIENT
  Age: 46 Year
  Sex: Female

DRUGS (1)
  1. EOVIST [Suspect]
     Indication: NUCLEAR MAGNETIC RESONANCE IMAGING LIVER
     Dosage: 10 ML, ONCE
     Route: 042
     Dates: start: 20130722, end: 20130722

REACTIONS (2)
  - Sneezing [Recovered/Resolved]
  - Throat irritation [Recovered/Resolved]
